FAERS Safety Report 6035508-9 (Version None)
Quarter: 2009Q1

REPORT INFORMATION
  Report Type: 
  Country: None (occurrence: None)
  Receive Date: 20090112
  Receipt Date: 20090112
  Transmission Date: 20090719
  Serious: No
  Sender: FDA-Public Use
  Company Number: None

PATIENT
  Age: 58 Year
  Sex: Female
  Weight: 74.8435 kg

DRUGS (2)
  1. PREVACID [Suspect]
     Indication: GASTROOESOPHAGEAL REFLUX DISEASE
     Dosage: 30 MG ONCE DAILY PO
     Route: 048
  2. PREVACID [Suspect]
     Indication: OESOPHAGITIS
     Dosage: 30 MG ONCE DAILY PO
     Route: 048

REACTIONS (1)
  - GASTRIC POLYPS [None]
